FAERS Safety Report 20663788 (Version 1)
Quarter: 2022Q2

REPORT INFORMATION
  Report Type: Spontaneous
  Country: HR (occurrence: HR)
  Receive Date: 20220401
  Receipt Date: 20220401
  Transmission Date: 20220721
  Serious: Yes (Other)
  Sender: FDA-Public Use
  Company Number: None

PATIENT
  Age: 42 Year
  Sex: Female

DRUGS (7)
  1. PRAZINE (PROMAZINE HYDROCHLORIDE) [Suspect]
     Active Substance: PROMAZINE HYDROCHLORIDE
     Dosage: UNIT DOSE: 625 MG, FREQUENCY TIME- 1 DAY, DURATION-1 DAYS
     Route: 048
     Dates: start: 20210928, end: 20210928
  2. RISPERIDONE [Suspect]
     Active Substance: RISPERIDONE
     Dosage: UNIT DOSE: 10 MG, FREQUENCY TIME- 1 DAY, DURATION-1 DAYS
     Route: 048
     Dates: start: 20210928, end: 20210928
  3. ZELDOX [Suspect]
     Active Substance: ZIPRASIDONE
     Dosage: UNIT DOSE: 400 MG, FREQUENCY TIME- 1 DAY, DURATION-1 DAYS
     Route: 048
     Dates: start: 20210928, end: 20210928
  4. LEVOMEPROMAZINE [Suspect]
     Active Substance: LEVOMEPROMAZINE
     Dosage: UNIT DOSE: 25 MG, FREQUENCY TIME- 1 DAY, DURATION-1 DAYS
     Route: 048
     Dates: start: 20210928, end: 20210928
  5. ZOLPIDEM TARTRATE [Suspect]
     Active Substance: ZOLPIDEM TARTRATE
     Dosage: 1 DF- 1 TABLET, UNIT DOSE: 30 DF, FREQUENCY TIME- 1 DAY, DURATION-1 DAYS
     Route: 048
     Dates: start: 20210928, end: 20210928
  6. NAPROXEN SODIUM [Suspect]
     Active Substance: NAPROXEN SODIUM
     Dosage: UNIT DOSE: 3300 MG, FREQUENCY TIME- 1 DAY, DURATION-1 DAYS
     Route: 048
     Dates: start: 20210928, end: 20210928
  7. ZOLOFT [Suspect]
     Active Substance: SERTRALINE HYDROCHLORIDE
     Dosage: UNIT DOSE: 250 MG, FREQUENCY TIME- 1 DAY, DURATION-1 DAYS
     Route: 048
     Dates: start: 20210928, end: 20210928

REACTIONS (3)
  - Hypotension [Unknown]
  - Suicide attempt [Unknown]
  - Intentional overdose [Unknown]

NARRATIVE: CASE EVENT DATE: 20210928
